FAERS Safety Report 10647944 (Version 2)
Quarter: 2014Q4

REPORT INFORMATION
  Report Type: Report from Study
  Country: US (occurrence: US)
  Receive Date: 20141212
  Receipt Date: 20141230
  Transmission Date: 20150529
  Serious: Yes (Hospitalization)
  Sender: FDA-Public Use
  Company Number: US-BIOGENIDEC-2014BI129754

PATIENT
  Age: 63 Year
  Sex: Female

DRUGS (1)
  1. TYSABRI [Suspect]
     Active Substance: NATALIZUMAB
     Indication: MULTIPLE SCLEROSIS
     Route: 042
     Dates: start: 20120606

REACTIONS (6)
  - Drug dose omission [Recovered/Resolved]
  - Oropharyngitis fungal [Recovered/Resolved]
  - Dehydration [Recovered/Resolved]
  - Clostridium difficile colitis [Recovered/Resolved]
  - Cystitis [Recovered/Resolved]
  - Pyrexia [Recovered/Resolved]

NARRATIVE: CASE EVENT DATE: 20141020
